FAERS Safety Report 7640894-X (Version None)
Quarter: 2011Q3

REPORT INFORMATION
  Report Type: 
  Country: None (occurrence: None)
  Receive Date: 20110728
  Receipt Date: 20110728
  Transmission Date: 20111222
  Serious: No
  Sender: FDA-Public Use
  Company Number: None

PATIENT
  Sex: Male
  Weight: 53.07 kg

DRUGS (1)
  1. LITHIUM CARBONATE [Suspect]
     Indication: BIPOLAR DISORDER
     Dosage: 600MG
     Route: 048
     Dates: start: 19970129, end: 20040807

REACTIONS (4)
  - DIABETES INSIPIDUS [None]
  - HYPERNATRAEMIA [None]
  - PYREXIA [None]
  - LETHARGY [None]
